FAERS Safety Report 9423405 (Version 1)
Quarter: 2013Q3

REPORT INFORMATION
  Report Type: Spontaneous
  Country: US (occurrence: US)
  Receive Date: 20130726
  Receipt Date: 20130726
  Transmission Date: 20140515
  Serious: Yes (Other)
  Sender: FDA-Public Use
  Company Number: US-GILEAD-2013-0077555

PATIENT
  Sex: Female

DRUGS (1)
  1. LETAIRIS [Suspect]
     Indication: PULMONARY HYPERTENSION
     Dosage: 5 MG, QD
     Route: 048
     Dates: start: 20110105

REACTIONS (5)
  - Cyanosis [Unknown]
  - Oxygen saturation decreased [Unknown]
  - General physical health deterioration [Unknown]
  - Dyspnoea [Unknown]
  - Fatigue [Unknown]
